FAERS Safety Report 6243699-X (Version None)
Quarter: 2009Q2

REPORT INFORMATION
  Report Type: 
  Country: None (occurrence: None)
  Receive Date: 20090624
  Receipt Date: 20090615
  Transmission Date: 20091009
  Serious: Yes (Death)
  Sender: FDA-Public Use
  Company Number: BR-ABBOTT-09P-020-0576457-01

PATIENT
  Sex: Male

DRUGS (4)
  1. RITONAVIR [Suspect]
     Indication: HIV INFECTION
     Route: 048
     Dates: start: 20060803, end: 20090514
  2. TMC114 [Concomitant]
     Indication: HIV INFECTION
     Dates: start: 20060824, end: 20090504
  3. TMC125 [Concomitant]
     Indication: HIV INFECTION
     Dates: start: 20080626, end: 20090514
  4. TMC 125/PLACEBO [Concomitant]
     Indication: HIV INFECTION
     Dates: start: 20060824, end: 20090514

REACTIONS (1)
  - DEATH [None]
